FAERS Safety Report 21084135 (Version 1)
Quarter: 2022Q3

REPORT INFORMATION
  Report Type: Spontaneous
  Country: US (occurrence: US)
  Receive Date: 20220714
  Receipt Date: 20220714
  Transmission Date: 20221027
  Serious: Yes (Hospitalization)
  Sender: FDA-Public Use
  Company Number: US-NOVARTISPH-NVSC2022US159648

PATIENT
  Age: 41 Year
  Sex: Male

DRUGS (3)
  1. OXALIPLATIN [Suspect]
     Active Substance: OXALIPLATIN
     Indication: Product used for unknown indication
     Dosage: BAG 1 (10 % OF TOTAL DOSE) OVER THE FIRST HOUR, THEN 90 ML (90 % OF TOTAL DOSE IN 100 ML) OVER 2 HOU
     Route: 041
  2. OXALIPLATIN [Suspect]
     Active Substance: OXALIPLATIN
     Dosage: BAG 2 90% OF THE TOTAL DOSE IN 250 ML OVER 3 HOURS
     Route: 041
  3. DIPHENHYDRAMINE [Concomitant]
     Active Substance: DIPHENHYDRAMINE
     Indication: Product used for unknown indication
     Dosage: 25 MG WAS ADMINISTERED PRIOR TO BAG 2
     Route: 065

REACTIONS (1)
  - Haemolysis [Unknown]
